FAERS Safety Report 23865601 (Version 2)
Quarter: 2024Q2

REPORT INFORMATION
  Report Type: Spontaneous
  Country: NL (occurrence: NL)
  Receive Date: 20240517
  Receipt Date: 20240624
  Transmission Date: 20240716
  Serious: Yes (Other)
  Sender: FDA-Public Use
  Company Number: NL-AUROBINDO-AUR-APL-2024-022831

PATIENT
  Age: 12 Year
  Sex: Female

DRUGS (23)
  1. MELPHALAN [Suspect]
     Active Substance: MELPHALAN
     Indication: Neuroblastoma
     Dosage: 187.5 MILLIGRAM/SQ. METER
     Route: 065
  2. MELPHALAN [Suspect]
     Active Substance: MELPHALAN
     Indication: Chemotherapy
  3. DACARBAZINE [Suspect]
     Active Substance: DACARBAZINE
     Indication: Neuroblastoma
     Dosage: 3000 MILLIGRAM/SQ. METER
     Route: 065
  4. DACARBAZINE [Suspect]
     Active Substance: DACARBAZINE
     Indication: Chemotherapy
  5. IFOSFAMIDE [Suspect]
     Active Substance: IFOSFAMIDE
     Indication: Neuroblastoma
     Dosage: 22500 MILLIGRAM/SQ. METER
     Route: 065
  6. IFOSFAMIDE [Suspect]
     Active Substance: IFOSFAMIDE
     Indication: Chemotherapy
  7. CARBOPLATIN [Suspect]
     Active Substance: CARBOPLATIN
     Indication: Neuroblastoma
     Dosage: 1500 MILLIGRAM/SQ. METER
     Route: 065
  8. CARBOPLATIN [Suspect]
     Active Substance: CARBOPLATIN
     Indication: Chemotherapy
  9. ETOPOSIDE [Suspect]
     Active Substance: ETOPOSIDE
     Indication: Neuroblastoma
     Dosage: 1200 MILLIGRAM/SQ. METER
     Route: 065
  10. ETOPOSIDE [Suspect]
     Active Substance: ETOPOSIDE
     Indication: Chemotherapy
  11. VINCRISTINE [Suspect]
     Active Substance: VINCRISTINE
     Indication: Neuroblastoma
     Dosage: 6 MILLIGRAM
     Route: 065
  12. VINCRISTINE [Suspect]
     Active Substance: VINCRISTINE
     Indication: Chemotherapy
  13. ETOPOSIDE PHOSPHATE [Suspect]
     Active Substance: ETOPOSIDE PHOSPHATE
     Indication: Neuroblastoma
     Dosage: 937.5 MILLIGRAM/SQ. METER
     Route: 065
  14. ETOPOSIDE PHOSPHATE [Suspect]
     Active Substance: ETOPOSIDE PHOSPHATE
     Indication: Chemotherapy
  15. VINDESINE [Suspect]
     Active Substance: VINDESINE
     Indication: Neuroblastoma
     Dosage: 8.9 MILLIGRAM/SQ. METER
     Route: 065
  16. VINDESINE [Suspect]
     Active Substance: VINDESINE
     Indication: Chemotherapy
  17. IOBENGUANE I-131 [Concomitant]
     Active Substance: IOBENGUANE I-131
     Indication: Stem cell transplant
     Dosage: UNK
     Route: 065
  18. ISOTRETINOIN [Concomitant]
     Active Substance: ISOTRETINOIN
     Indication: Stem cell transplant
     Dosage: UNK
     Route: 065
  19. DINUTUXIMAB [Concomitant]
     Active Substance: DINUTUXIMAB
     Indication: Stem cell transplant
     Dosage: UNK
     Route: 065
  20. CISPLATIN [Concomitant]
     Active Substance: CISPLATIN
     Indication: Neuroblastoma
     Dosage: 487.5 MILLIGRAM/SQ. METER
     Route: 065
  21. CISPLATIN [Concomitant]
     Active Substance: CISPLATIN
     Indication: Chemotherapy
  22. DOXORUBICIN [Concomitant]
     Active Substance: DOXORUBICIN
     Indication: Neuroblastoma
     Dosage: 178.1 MILLIGRAM/SQ. METER
     Route: 065
  23. DOXORUBICIN [Concomitant]
     Active Substance: DOXORUBICIN
     Indication: Chemotherapy

REACTIONS (1)
  - Premature menopause [Recovering/Resolving]
